FAERS Safety Report 6094932-9 (Version None)
Quarter: 2009Q1

REPORT INFORMATION
  Report Type: 
  Country: None (occurrence: None)
  Receive Date: 20090227
  Receipt Date: 20090223
  Transmission Date: 20090719
  Serious: Yes (Hospitalization)
  Sender: FDA-Public Use
  Company Number: US-BRISTOL-MYERS SQUIBB COMPANY-14519839

PATIENT
  Age: 51 Year
  Sex: Male

DRUGS (2)
  1. AMPHOTERICIN B [Suspect]
     Indication: BLASTOMYCOSIS
     Dosage: 1976 MG
     Route: 042
  2. HYDROCORTISONE [Suspect]
     Dosage: 1DF=25-40MG
     Route: 042

REACTIONS (4)
  - CARDIAC FAILURE CONGESTIVE [None]
  - CARDIOMEGALY [None]
  - HYPOKALAEMIA [None]
  - WEIGHT INCREASED [None]
